FAERS Safety Report 23815827 (Version 1)
Quarter: 2024Q2

REPORT INFORMATION
  Report Type: Spontaneous
  Country: TR (occurrence: TR)
  Receive Date: 20240503
  Receipt Date: 20240503
  Transmission Date: 20240716
  Serious: Yes (Other)
  Sender: FDA-Public Use
  Company Number: TR-BIOVITRUM-2024-TR-006532

PATIENT
  Sex: Female

DRUGS (1)
  1. ANAKINRA [Suspect]
     Active Substance: ANAKINRA
     Indication: COVID-19

REACTIONS (2)
  - Haemophagocytic lymphohistiocytosis [Unknown]
  - Off label use [Unknown]
